FAERS Safety Report 8360282-0 (Version None)
Quarter: 2012Q1

REPORT INFORMATION
  Report Type: 
  Country: None (occurrence: None)
  Receive Date: 20120323
  Receipt Date: 20111027
  Transmission Date: 20120608
  Serious: Yes (Hospitalization)
  Sender: FDA-Public Use
  Company Number: 163-21880-11101077

PATIENT
  Age: 68 Year
  Sex: Female
  Weight: 66.2252 kg

DRUGS (18)
  1. BENADRYL (CIPHENHYDRAMINE HYDROCHLORIDE) [Concomitant]
  2. PLAVIX [Concomitant]
  3. POTASSIUM CHLORIDE [Concomitant]
  4. VITAMIN B-100 COMPLEX (B-KOMPLEX ^LECIVA) [Concomitant]
  5. ARICEPT [Concomitant]
  6. MULTI-VITAMINS [Concomitant]
  7. REVLIMID [Suspect]
     Indication: MULTIPLE MYELOMA
     Dosage: 5 MG, QD X 28 DAYS, PO
     Route: 048
  8. VITAMIN E [Concomitant]
  9. LASIX [Concomitant]
  10. TRAMADOL HYDROCHLORIDE [Concomitant]
  11. VELCADE [Concomitant]
  12. ZOMETA [Concomitant]
  13. BACTRIM [Concomitant]
  14. ALOXI [Concomitant]
  15. CIPRO [Concomitant]
  16. IRON [Concomitant]
  17. METFORMIN HCL [Concomitant]
  18. ASPIRIN [Concomitant]

REACTIONS (2)
  - DEEP VEIN THROMBOSIS [None]
  - DECUBITUS ULCER [None]
